FAERS Safety Report 4893277-X (Version None)
Quarter: 2006Q1

REPORT INFORMATION
  Report Type: 
  Country: None (occurrence: None)
  Receive Date: 20060124
  Receipt Date: 20060112
  Transmission Date: 20060701
  Serious: Yes (Hospitalization, Other)
  Sender: FDA-Public Use
  Company Number: 8009427

PATIENT
  Age: 52 Year
  Sex: Female
  Weight: 85 kg

DRUGS (3)
  1. KEPPRA [Suspect]
     Indication: CONVULSION
     Dosage: 250 MG 2/D PO
     Route: 048
     Dates: start: 20040701, end: 20041110
  2. KEPPRA [Suspect]
     Indication: CONVULSION
     Dosage: 375 MG PO
     Route: 048
     Dates: start: 20041110
  3. TEGRETOL [Concomitant]

REACTIONS (4)
  - BLOOD PRESSURE INCREASED [None]
  - CARDIOMYOPATHY [None]
  - CONVULSION [None]
  - MIGRAINE [None]
